FAERS Safety Report 19092214 (Version 2)
Quarter: 2021Q2

REPORT INFORMATION
  Report Type: Spontaneous
  Country: US (occurrence: US)
  Receive Date: 20210405
  Receipt Date: 20210526
  Transmission Date: 20210717
  Serious: No
  Sender: FDA-Public Use
  Company Number: US-JNJFOC-20210351416

PATIENT
  Age: 70 Year
  Sex: Female

DRUGS (2)
  1. STELARA [Suspect]
     Active Substance: USTEKINUMAB
     Indication: PSORIASIS
     Dosage: ON DAY 0
     Route: 058
     Dates: start: 20210115
  2. STELARA [Suspect]
     Active Substance: USTEKINUMAB
     Dosage: WEEK 4,THEN EVERY 12 WEEKS THEREAFTER
     Route: 058
     Dates: start: 20210212

REACTIONS (4)
  - Pruritus [Unknown]
  - Condition aggravated [Unknown]
  - Therapeutic response shortened [Unknown]
  - Product dose omission issue [Unknown]

NARRATIVE: CASE EVENT DATE: 2021
